FAERS Safety Report 22004174 (Version 1)
Quarter: 2023Q1

REPORT INFORMATION
  Report Type: Spontaneous
  Country: US (occurrence: US)
  Receive Date: 20230217
  Receipt Date: 20230217
  Transmission Date: 20230418
  Serious: Yes (Other)
  Sender: FDA-Public Use
  Company Number: US-BRISTOL-MYERS SQUIBB COMPANY-2023-021207

PATIENT
  Age: 68 Year
  Sex: Female

DRUGS (1)
  1. AZACITIDINE [Suspect]
     Active Substance: AZACITIDINE
     Indication: Acute myeloid leukaemia
     Dosage: FREQ: DAYS 1-14
     Route: 048
     Dates: start: 20220806

REACTIONS (2)
  - Graft versus host disease in skin [Unknown]
  - Graft versus host disease in eye [Unknown]

NARRATIVE: CASE EVENT DATE: 20230203
